FAERS Safety Report 25934031 (Version 2)
Quarter: 2025Q4

REPORT INFORMATION
  Report Type: Spontaneous
  Country: EU (occurrence: EU)
  Receive Date: 20251017
  Receipt Date: 20251205
  Transmission Date: 20260117
  Serious: Yes (Other)
  Sender: AMGEN
  Company Number: EU-AMGEN-POLSP2025203314

PATIENT
  Age: 71 Year
  Sex: Female

DRUGS (3)
  1. LUMAKRAS [Suspect]
     Active Substance: SOTORASIB
     Indication: Lung neoplasm malignant
     Dosage: 960 MILLIGRAM, QD (8 TABLETS OF 120 MG)
     Route: 065
     Dates: start: 20241209
  2. LUMAKRAS [Suspect]
     Active Substance: SOTORASIB
     Indication: K-ras gene mutation
  3. LEVOFLOXACIN [Concomitant]
     Active Substance: LEVOFLOXACIN

REACTIONS (4)
  - Hepatotoxicity [Unknown]
  - Compression fracture [Unknown]
  - Tachycardia [Recovered/Resolved]
  - Emphysema [Unknown]

NARRATIVE: CASE EVENT DATE: 20250101
